FAERS Safety Report 21132210 (Version 14)
Quarter: 2024Q1

REPORT INFORMATION
  Report Type: Report from Study
  Country: DE (occurrence: DE)
  Receive Date: 20220726
  Receipt Date: 20240321
  Transmission Date: 20240409
  Serious: Yes (Hospitalization, Other)
  Sender: FDA-Public Use
  Company Number: DE-PFM-2022-04918

PATIENT
  Sex: Female
  Weight: 59 kg

DRUGS (12)
  1. BRAFTOVI [Suspect]
     Active Substance: ENCORAFENIB
     Indication: Colorectal cancer
     Dosage: 300 MG PER DAY
     Route: 048
     Dates: start: 20220317, end: 20230323
  2. CETUXIMAB [Suspect]
     Active Substance: CETUXIMAB
     Indication: Colorectal cancer
     Dosage: 400 MG/M2, WEEKLY (LIQUID DILUTION)
     Route: 042
     Dates: start: 20220317
  3. CETUXIMAB [Suspect]
     Active Substance: CETUXIMAB
     Dosage: 250 MG/M2, WEEKLY (LIQUID DILUTION)
     Route: 042
     Dates: end: 20230316
  4. CANDESARTAN CILEXETIL\HYDROCHLOROTHIAZIDE [Concomitant]
     Active Substance: CANDESARTAN CILEXETIL\HYDROCHLOROTHIAZIDE
     Indication: Hypertension
     Dosage: 25 MG DAILY(CANDESARTAN/HCT 16, 25 MG)
     Route: 048
     Dates: start: 20181210
  5. CARBOPLATIN [Concomitant]
     Active Substance: CARBOPLATIN
     Indication: Hypertension
     Dosage: 20 MG DAILY
     Route: 048
     Dates: start: 20181210
  6. ELIQUIS [Concomitant]
     Active Substance: APIXABAN
     Indication: Prophylaxis
     Dosage: 10 MG DAILY
     Route: 048
     Dates: start: 20210429
  7. CLEMASTINE [Concomitant]
     Active Substance: CLEMASTINE
     Indication: Prophylaxis
     Dosage: 2 MG, WEEKLY
     Route: 042
     Dates: start: 20220317
  8. DEXAMETHASONE [Concomitant]
     Active Substance: DEXAMETHASONE
     Indication: Prophylaxis
     Dosage: 8 MG DAILY (DEXAMETHASON, 4 MG/8 MG JENAPHARM)
     Route: 048
     Dates: start: 20220324, end: 20220510
  9. PANTOPRAZOLE [Concomitant]
     Active Substance: PANTOPRAZOLE
     Indication: Prophylaxis
     Dosage: 40 MG DAILY
     Route: 048
     Dates: start: 20220324
  10. DEXAMETHASONE [Concomitant]
     Active Substance: DEXAMETHASONE
     Indication: Prophylaxis
     Dosage: 4 MG, DAILY
     Route: 048
     Dates: start: 20220818
  11. METOPROLOL [Concomitant]
     Active Substance: METOPROLOL
     Indication: Hypertension
     Dosage: 47.5 MG, DAILY
     Route: 048
     Dates: start: 20210520
  12. XGEVA [Concomitant]
     Active Substance: DENOSUMAB
     Indication: Diagnostic procedure
     Dosage: 120 MG, MONTHLY
     Route: 058
     Dates: start: 20230427

REACTIONS (5)
  - Abscess [Recovered/Resolved]
  - Pulmonary embolism [Recovered/Resolved]
  - Weight decreased [Not Recovered/Not Resolved]
  - Dermatitis acneiform [Recovering/Resolving]
  - Contusion [Recovering/Resolving]

NARRATIVE: CASE EVENT DATE: 20220419
